FAERS Safety Report 15057538 (Version 1)
Quarter: 2018Q2

REPORT INFORMATION
  Report Type: Spontaneous
  Country: JP (occurrence: JP)
  Receive Date: 20180625
  Receipt Date: 20180625
  Transmission Date: 20180711
  Serious: Yes (Hospitalization, Other)
  Sender: FDA-Public Use
  Company Number: JP-ACCORD-068723

PATIENT
  Age: 65 Year
  Sex: Female

DRUGS (7)
  1. METHOTREXATE. [Suspect]
     Active Substance: METHOTREXATE
     Indication: RHEUMATOID ARTHRITIS
     Dosage: 6 MG WEEKLY FOR 17 YEARS
  2. FOLATE SODIUM/FOLIC ACID [Concomitant]
     Dosage: 5 MG/WEEK
  3. DICLOFENAC [Concomitant]
     Active Substance: DICLOFENAC
  4. CANDESARTAN. [Concomitant]
     Active Substance: CANDESARTAN
  5. RISEDRONIC ACID [Concomitant]
     Active Substance: RISEDRONIC ACID
  6. LANSOPRAZOLE. [Concomitant]
     Active Substance: LANSOPRAZOLE
  7. PREDNISOLONE. [Concomitant]
     Active Substance: PREDNISOLONE
     Dosage: 5 MG/DAY

REACTIONS (2)
  - Epstein-Barr virus infection [Recovering/Resolving]
  - Angiocentric lymphoma [Recovering/Resolving]
